APPROVED DRUG PRODUCT: ZANTAC 75
Active Ingredient: RANITIDINE HYDROCHLORIDE
Strength: EQ 75MG BASE
Dosage Form/Route: TABLET;ORAL
Application: N020520 | Product #001
Applicant: CHATTEM INC DBA SANOFI CONSUMER HEALTHCARE
Approved: Dec 19, 1995 | RLD: Yes | RS: No | Type: DISCN